FAERS Safety Report 9889143 (Version 7)
Quarter: 2015Q3

REPORT INFORMATION
  Report Type: Spontaneous
  Country: DK (occurrence: GB)
  Receive Date: 20140211
  Receipt Date: 20150923
  Transmission Date: 20151125
  Serious: Yes (Life-Threatening, Hospitalization, Other)
  Sender: FDA-Public Use
  Company Number: GB-FRI-1000054114

PATIENT
  Age: 24 Year
  Sex: Female

DRUGS (8)
  1. CITALOPRAM [Suspect]
     Active Substance: CITALOPRAM HYDROBROMIDE
     Dosage: OVERDOSE: DOSE NOT SPECIFIED
     Route: 048
  2. CITALOPRAM [Suspect]
     Active Substance: CITALOPRAM HYDROBROMIDE
     Indication: PRODUCT USED FOR UNKNOWN INDICATION
     Dosage: 30 MG DAILY
     Route: 048
  3. TOPAMAX [Suspect]
     Active Substance: TOPIRAMATE
     Dosage: OVERDOSE: DOSE NOT SPECIFIED
     Route: 048
  4. TRAMADOL. [Suspect]
     Active Substance: TRAMADOL
     Indication: PRODUCT USED FOR UNKNOWN INDICATION
     Dosage: DOSE NOT SPECIFIED
     Route: 065
  5. TRAMADOL. [Suspect]
     Active Substance: TRAMADOL
     Dosage: OVERDOSE: DOSE NOT SPECIFIED
     Route: 065
  6. CODEINE [Suspect]
     Active Substance: CODEINE
     Indication: PRODUCT USED FOR UNKNOWN INDICATION
     Dosage: DOSE UNKNOWN
     Route: 065
  7. CODEINE [Suspect]
     Active Substance: CODEINE
     Dosage: OVERDOSE: DOSE NOT SPECIFIED
     Route: 065
  8. TOPAMAX [Suspect]
     Active Substance: TOPIRAMATE
     Indication: EPILEPSY
     Dosage: DOSE UNKNOWN
     Route: 048
     Dates: start: 201105

REACTIONS (15)
  - Hyperventilation [Unknown]
  - Organ failure [Unknown]
  - Weight decreased [Unknown]
  - Hypersensitivity [Unknown]
  - Brain oedema [Unknown]
  - Personality change [Unknown]
  - Coma [Recovered/Resolved]
  - Metabolic acidosis [Recovered/Resolved]
  - Borderline personality disorder [Unknown]
  - Anger [Unknown]
  - Renal impairment [Unknown]
  - Overdose [Unknown]
  - Acidosis [Recovered/Resolved]
  - Aggression [Unknown]
  - Seizure [Unknown]

NARRATIVE: CASE EVENT DATE: 2011
